FAERS Safety Report 6233132-6 (Version None)
Quarter: 2009Q2

REPORT INFORMATION
  Report Type: 
  Country: None (occurrence: None)
  Receive Date: 20090617
  Receipt Date: 20090609
  Transmission Date: 20091009
  Serious: Yes (Other)
  Sender: FDA-Public Use
  Company Number: US-GENENTECH-284754

PATIENT
  Age: 67 Year
  Sex: Female

DRUGS (1)
  1. AVASTIN [Suspect]
     Indication: OVARIAN CANCER
     Dosage: UNK
     Dates: start: 20080101, end: 20080101

REACTIONS (2)
  - HYPERTENSIVE ENCEPHALOPATHY [None]
  - TRANSIENT ISCHAEMIC ATTACK [None]
